FAERS Safety Report 8678637 (Version 2)
Quarter: 2012Q4

REPORT INFORMATION
  Report Type: 
  Country: US (occurrence: US)
  Receive Date: 20120723
  Receipt Date: 20120830
  Transmission Date: 20130627
  Serious: No
  Sender: FDA-Public Use
  Company Number: US-PFIZER INC-2012174471

PATIENT
  Age: 65 Year
  Sex: Male
  Weight: 77 kg

DRUGS (11)
  1. LIPITOR [Suspect]
     Indication: BLOOD CHOLESTEROL INCREASED
     Dosage: 10 mg, 1x/day, qhs (everyday at bedtime)
     Route: 048
  2. LIPITOR [Suspect]
     Indication: DIABETES MELLITUS
  3. LIPITOR [Suspect]
     Indication: BLOOD CHOLESTEROL
  4. VIAGRA [Suspect]
     Indication: SEXUALLY ACTIVE
     Dosage: 50 mg, as needed
     Route: 048
  5. VIAGRA [Suspect]
     Indication: ERECTILE DYSFUNCTION
  6. ALLOPURINOL [Concomitant]
     Indication: GOUT
     Dosage: 100 mg, 1x/day
  7. ELAVIL [Concomitant]
     Indication: PAIN
     Dosage: 50 mg, 1x/day, qhs
  8. COZAAR [Concomitant]
     Indication: HYPERTENSION
     Dosage: 100 mg, 1x/day
  9. NORVASC [Concomitant]
     Indication: HYPERTENSION
     Dosage: 10 mg, 1x/day
  10. ZANTAC [Concomitant]
     Indication: GASTROOESOPHAGEAL REFLUX DISEASE
     Dosage: 150 mg, 2x/day
  11. INDOCIN [Concomitant]
     Indication: GOUT
     Dosage: 75 mg, 3x/day

REACTIONS (3)
  - Hypersensitivity [Not Recovered/Not Resolved]
  - Sneezing [Not Recovered/Not Resolved]
  - Rhinorrhoea [Not Recovered/Not Resolved]
